FAERS Safety Report 15689327 (Version 2)
Quarter: 2019Q1

REPORT INFORMATION
  Report Type: Report from Study
  Country: US (occurrence: US)
  Receive Date: 20181205
  Receipt Date: 20190316
  Transmission Date: 20190417
  Serious: Yes (Other)
  Sender: FDA-Public Use
  Company Number: PHEH2018US050678

PATIENT
  Sex: Female
  Weight: 54.4 kg

DRUGS (2)
  1. ENTRESTO [Suspect]
     Active Substance: SACUBITRIL\VALSARTAN
     Indication: CARDIAC FAILURE
  2. ENTRESTO [Suspect]
     Active Substance: SACUBITRIL\VALSARTAN
     Indication: CARDIOMYOPATHY
     Dosage: 24-26 MG, UNK
     Route: 048
     Dates: start: 201711, end: 2018

REACTIONS (3)
  - Neuropathy peripheral [Unknown]
  - Concomitant disease aggravated [Unknown]
  - Rash [Unknown]
